FAERS Safety Report 20782789 (Version 2)
Quarter: 2022Q3

REPORT INFORMATION
  Report Type: Spontaneous
  Country: US (occurrence: US)
  Receive Date: 20220504
  Receipt Date: 20220728
  Transmission Date: 20221027
  Serious: Yes (Hospitalization)
  Sender: FDA-Public Use
  Company Number: US-BRISTOL-MYERS SQUIBB COMPANY-2022-019310

PATIENT
  Age: 60 Year
  Sex: Male

DRUGS (2)
  1. POMALYST [Suspect]
     Active Substance: POMALIDOMIDE
     Indication: Plasma cell myeloma
     Dosage: POMALYST FROM  4MG  TO  3MG  DUE TO  A  DECREASE  IN  HIS  WBC
     Route: 048
  2. POMALYST [Suspect]
     Active Substance: POMALIDOMIDE
     Dosage: FREQUENCY:21 Q 28 DAYS
     Route: 048
     Dates: start: 20220406

REACTIONS (2)
  - Adverse event [Not Recovered/Not Resolved]
  - White blood cell count decreased [Unknown]
